FAERS Safety Report 9402838 (Version 2)
Quarter: 2013Q3

REPORT INFORMATION
  Report Type: Spontaneous
  Country: US (occurrence: None)
  Receive Date: 20130712
  Receipt Date: 20130814
  Transmission Date: 20140515
  Serious: Yes (Other)
  Sender: FDA-Public Use
  Company Number: ACO_37195_2013

PATIENT
  Age: 76 Year
  Sex: Female
  Weight: 70.3 kg

DRUGS (9)
  1. AMPYRA (DALFAMPRIDINE) TABLET, 10MG [Suspect]
     Indication: MULTIPLE SCLEROSIS
     Route: 048
  2. LISINOPRIL (LISINOPRIL) [Concomitant]
  3. NIFEDICAL XL (NIFEDIPINE) [Concomitant]
  4. CITALOPRAM (CITALOPRAM) [Concomitant]
  5. METFORMIN HCL (METFORMIN HYDROCHLORIDE) [Concomitant]
  6. METOPROLOL (METOPROLOL) [Concomitant]
  7. OMEPRAZOLE (OMEPRAZOLE) [Concomitant]
  8. SIMVASTATIN (SIMVASTATIN) [Concomitant]
  9. GABAPENTIN (GABAPENTIN) [Concomitant]

REACTIONS (6)
  - Wrist fracture [None]
  - Fall [None]
  - Gait disturbance [None]
  - Balance disorder [None]
  - Upper limb fracture [None]
  - Ligament rupture [None]
